FAERS Safety Report 17563127 (Version 1)
Quarter: 2020Q1

REPORT INFORMATION
  Report Type: Spontaneous
  Country: CH (occurrence: CH)
  Receive Date: 20200319
  Receipt Date: 20200319
  Transmission Date: 20200409
  Serious: Yes (Other)
  Sender: FDA-Public Use
  Company Number: CH-SA-2020SA063832

PATIENT
  Age: 65 Year
  Sex: Female

DRUGS (1)
  1. CLEXANE [Suspect]
     Active Substance: ENOXAPARIN SODIUM
     Indication: PROPHYLAXIS
     Dosage: UNK

REACTIONS (8)
  - Pallor [Unknown]
  - Peripheral coldness [Unknown]
  - Heparin-induced thrombocytopenia [Recovered/Resolved]
  - Peripheral ischaemia [Unknown]
  - Compartment syndrome [Unknown]
  - Arterial occlusive disease [Unknown]
  - Gastrointestinal necrosis [Unknown]
  - Pain [Unknown]
